FAERS Safety Report 6915034-2 (Version None)
Quarter: 2010Q3

REPORT INFORMATION
  Report Type: 
  Country: None (occurrence: None)
  Receive Date: 20100809
  Receipt Date: 20100726
  Transmission Date: 20110219
  Serious: Yes (Hospitalization)
  Sender: FDA-Public Use
  Company Number: US-MYLANLABS-2010S1013351

PATIENT
  Age: 48 Year
  Sex: Male

DRUGS (4)
  1. ATENOLOL [Suspect]
     Indication: HYPERTENSION
  2. METHYLPREDNISOLONE [Suspect]
     Dosage: 30 MG/KG OVER 45 MINUTES
  3. METHYLPREDNISOLONE [Suspect]
     Dosage: 5.4 MG/KG/H OVER 23 HOURS
     Route: 041
  4. PHENYLEPHRINE HCL [Concomitant]

REACTIONS (4)
  - HYPOTENSION [None]
  - PNEUMONIA [None]
  - SPINAL CORD DISORDER [None]
  - UPPER GASTROINTESTINAL HAEMORRHAGE [None]
